FAERS Safety Report 6835587-2 (Version None)
Quarter: 2010Q3

REPORT INFORMATION
  Report Type: 
  Country: None (occurrence: None)
  Receive Date: 20100713
  Receipt Date: 20100701
  Transmission Date: 20110219
  Serious: Yes (Other)
  Sender: FDA-Public Use
  Company Number: CO-ELI_LILLY_AND_COMPANY-CO201005002703

PATIENT
  Age: 58 Year
  Sex: Male

DRUGS (12)
  1. FORTEO [Suspect]
     Indication: OSTEOPOROSIS
     Dosage: 20 UG, DAILY (1/D)
     Route: 058
     Dates: start: 20091231, end: 20100401
  2. OMEPRAZOLE [Concomitant]
     Indication: GASTRITIS
     Dosage: UNK, UNKNOWN
  3. ENALAPRIL MALEATE [Concomitant]
     Indication: HYPERTENSION
     Dosage: UNK, UNKNOWN
  4. FUROSEMIDE [Concomitant]
     Indication: HYPERTENSION
     Dosage: UNK, UNKNOWN
  5. SPIRONOLACTONE [Concomitant]
     Indication: HYPERTENSION
     Dosage: UNK, UNKNOWN
  6. CALCITRIOL [Concomitant]
     Indication: SUPPLEMENTATION THERAPY
     Dosage: UNK, UNKNOWN
  7. ZOLPIDEM [Concomitant]
     Dosage: UNK, UNKNOWN
  8. ACETAMINOPHEN [Concomitant]
     Indication: ARTHRALGIA
     Dosage: UNK, UNKNOWN
  9. CALCITONIN [Concomitant]
     Indication: ARTHRALGIA
     Dosage: UNK, UNKNOWN
  10. GLUCOSAMINE [Concomitant]
     Dosage: UNK, UNKNOWN
  11. PIROXICAM [Concomitant]
     Indication: ANTIINFLAMMATORY THERAPY
     Dosage: UNK, UNKNOWN
  12. TAMSULOSIN HYDROCHLORIDE [Concomitant]
     Dosage: UNK, UNKNOWN

REACTIONS (1)
  - HEPATIC NEOPLASM MALIGNANT [None]
